FAERS Safety Report 8444257-9 (Version None)
Quarter: 2012Q2

REPORT INFORMATION
  Report Type: 
  Country: None (occurrence: None)
  Receive Date: 20120618
  Receipt Date: 20120612
  Transmission Date: 20120825
  Serious: Yes (Death, Hospitalization)
  Sender: FDA-Public Use
  Company Number: US-ASTELLAS-2012US003557

PATIENT
  Sex: Male

DRUGS (1)
  1. ERLOTINIB HYDROCHLORIDE [Suspect]
     Indication: LUNG CARCINOMA CELL TYPE UNSPECIFIED STAGE 0
     Dosage: 100 MG, UID/QD
     Route: 048
     Dates: start: 20110917

REACTIONS (6)
  - THROMBOCYTOPENIA [None]
  - HEPATIC CIRRHOSIS [None]
  - NEOPLASM MALIGNANT [None]
  - HEPATIC FAILURE [None]
  - INCORRECT DOSE ADMINISTERED [None]
  - ARTERIOSCLEROSIS CORONARY ARTERY [None]
